FAERS Safety Report 7608500-8 (Version None)
Quarter: 2011Q3

REPORT INFORMATION
  Report Type: 
  Country: None (occurrence: None)
  Receive Date: 20110714
  Receipt Date: 20110711
  Transmission Date: 20111222
  Serious: Yes (Hospitalization)
  Sender: FDA-Public Use
  Company Number: IT-BRISTOL-MYERS SQUIBB COMPANY-15891989

PATIENT
  Age: 58 Year
  Sex: Male

DRUGS (4)
  1. ATENOLOL [Concomitant]
  2. SUCRALFATE [Concomitant]
     Dates: start: 20110527
  3. ESOMEPRAZOLE MAGNESIUM [Concomitant]
     Dates: start: 20110315
  4. IPILIMUMAB [Suspect]
     Indication: MALIGNANT MELANOMA
     Route: 042
     Dates: start: 20110429, end: 20110616

REACTIONS (1)
  - GASTROINTESTINAL OBSTRUCTION [None]
